FAERS Safety Report 7025357-7 (Version None)
Quarter: 2010Q4

REPORT INFORMATION
  Report Type: 
  Country: None (occurrence: None)
  Receive Date: 20101001
  Receipt Date: 20100917
  Transmission Date: 20110411
  Serious: Yes (Other)
  Sender: FDA-Public Use
  Company Number: PHHY2010US10336

PATIENT
  Sex: Male

DRUGS (6)
  1. ZOMETA [Suspect]
     Indication: PROSTATE CANCER
     Dosage: UNK
     Dates: start: 20040101
  2. ZOMETA [Suspect]
     Dosage: UNK
     Dates: start: 20050317
  3. ZOMETA [Suspect]
     Dosage: UNK
     Dates: start: 20050603
  4. ZOMETA [Suspect]
     Dosage: UNK
     Dates: start: 20050830
  5. CHEMOTHERAPEUTICS NOS [Suspect]
     Dosage: UNK
     Dates: start: 20040101
  6. TRIPLE BLOCKADE THERAPY [Suspect]
     Dosage: UNK
     Dates: start: 20040101

REACTIONS (4)
  - DRUG INEFFECTIVE [None]
  - FEELING ABNORMAL [None]
  - NEOPLASM MALIGNANT [None]
  - PROSTATIC SPECIFIC ANTIGEN INCREASED [None]
